FAERS Safety Report 7453604-6 (Version None)
Quarter: 2011Q2

REPORT INFORMATION
  Report Type: 
  Country: None (occurrence: None)
  Receive Date: 20110502
  Receipt Date: 20110418
  Transmission Date: 20111010
  Serious: Yes (Hospitalization, Other)
  Sender: FDA-Public Use
  Company Number: US-BAYER-201039444NA

PATIENT
  Age: 30 Year
  Sex: Female
  Weight: 78.005 kg

DRUGS (5)
  1. YASMIN [Suspect]
     Indication: PRODUCT USED FOR UNKNOWN INDICATION
     Dates: start: 20071006, end: 20071028
  2. CIPROFLOXACIN [Concomitant]
  3. MULTI-VITAMIN [Concomitant]
  4. LORAZEPAM [Concomitant]
  5. EFFEXOR [Concomitant]

REACTIONS (12)
  - CYSTITIS INTERSTITIAL [None]
  - CONVULSION [None]
  - PLEURISY [None]
  - PULMONARY INFARCTION [None]
  - DEPRESSION [None]
  - DYSPNOEA [None]
  - DIZZINESS [None]
  - PARAESTHESIA [None]
  - HYPOAESTHESIA [None]
  - ANXIETY [None]
  - PULMONARY EMBOLISM [None]
  - CHEST PAIN [None]
